FAERS Safety Report 6021960-1 (Version None)
Quarter: 2008Q4

REPORT INFORMATION
  Report Type: 
  Country: None (occurrence: None)
  Receive Date: 20081229
  Receipt Date: 20081218
  Transmission Date: 20090506
  Serious: Yes (Other)
  Sender: FDA-Public Use
  Company Number: FR-ROCHE-601775

PATIENT
  Age: 57 Year
  Sex: Female
  Weight: 50 kg

DRUGS (7)
  1. BONIVA [Suspect]
     Indication: OSTEOPOROSIS
     Dosage: DOSAGE REGIMEN REPORTED AS 3MG/ 3MONTH.
     Route: 042
     Dates: start: 20070401
  2. BONIVA [Suspect]
     Dosage: DOSAGE REGIMEN REPORTED AS 3MG/ 3MONTH. FORM REPORTED AS INJECTABLE SOLUTION.
     Route: 042
     Dates: start: 20081101
  3. UVEDOSE [Concomitant]
     Indication: OSTEOPOROSIS
     Dosage: DOSAGE REGIMEN : 1 AMP
     Route: 048
     Dates: start: 20080101
  4. PROPOFAN [Concomitant]
     Indication: FIBROMYALGIA
     Dosage: DOSAGE REGIMEN : 6 QD
     Route: 048
     Dates: start: 20080101
  5. NEXIUM [Concomitant]
     Dosage: DRUG NAME : INEXIUM 40, DOSAGE REGIMEN : 1 QD.
     Route: 048
     Dates: start: 20080101
  6. GELOX [Concomitant]
     Dosage: DOSAGE REGIMEN : 6 QD
     Route: 048
     Dates: start: 20080101
  7. OROCAL [Concomitant]
     Indication: OSTEOPOROSIS
     Dosage: DOSAGE REGIMEN : 500 MG X 2
     Route: 048
     Dates: start: 20080101

REACTIONS (5)
  - EXTRAVASATION [None]
  - INJECTION SITE INDURATION [None]
  - INJECTION SITE OEDEMA [None]
  - INJECTION SITE PAIN [None]
  - THROMBOSIS [None]
